FAERS Safety Report 24338382 (Version 2)
Quarter: 2024Q4

REPORT INFORMATION
  Report Type: Spontaneous
  Country: US (occurrence: US)
  Receive Date: 20240919
  Receipt Date: 20241004
  Transmission Date: 20250114
  Serious: No
  Sender: SANOFI AVENTIS
  Company Number: US-SA-2024SA266963

PATIENT
  Age: 44 Year
  Sex: Female

DRUGS (3)
  1. DUPIXENT [Suspect]
     Active Substance: DUPILUMAB
     Indication: Dermatitis
     Dosage: 300 MG, QOW
     Route: 058
  2. DUPIXENT [Suspect]
     Active Substance: DUPILUMAB
     Indication: Transient acantholytic dermatosis
  3. DUPIXENT [Suspect]
     Active Substance: DUPILUMAB
     Indication: Eczema

REACTIONS (10)
  - Rash macular [Unknown]
  - Dry skin [Unknown]
  - Urinary tract infection [Recovered/Resolved]
  - Pruritus [Unknown]
  - Skin burning sensation [Unknown]
  - Skin exfoliation [Unknown]
  - Injection site pain [Unknown]
  - Dermatitis [Unknown]
  - Product use in unapproved indication [Unknown]
  - Product preparation error [Unknown]

NARRATIVE: CASE EVENT DATE: 20240901
